FAERS Safety Report 20684553 (Version 10)
Quarter: 2023Q2

REPORT INFORMATION
  Report Type: Spontaneous
  Country: JP (occurrence: JP)
  Receive Date: 20220407
  Receipt Date: 20230622
  Transmission Date: 20230721
  Serious: Yes (Hospitalization, Other)
  Sender: FDA-Public Use
  Company Number: JP-MSD-2202JPN002816J

PATIENT
  Age: 8 Decade
  Sex: Female

DRUGS (8)
  1. KEYTRUDA [Suspect]
     Active Substance: PEMBROLIZUMAB
     Indication: Endometrial cancer stage IV
     Dosage: 200 MILLIGRAM, Q3W
     Route: 041
     Dates: start: 20220210, end: 2022
  2. KEYTRUDA [Suspect]
     Active Substance: PEMBROLIZUMAB
     Dosage: 200 MILLIGRAM, Q3W
     Route: 041
     Dates: start: 20220714
  3. LENVIMA [Suspect]
     Active Substance: LENVATINIB
     Indication: Endometrial cancer stage IV
     Dosage: 20 MILLIGRAM, QD
     Route: 048
     Dates: start: 20220210, end: 20220224
  4. LENVIMA [Suspect]
     Active Substance: LENVATINIB
     Dosage: 14 MILLIGRAM, QD
     Route: 048
     Dates: start: 20220303, end: 20220310
  5. LENVIMA [Suspect]
     Active Substance: LENVATINIB
     Dosage: 14 MILLIGRAM, QD
     Route: 048
     Dates: start: 202203, end: 20220316
  6. LENVIMA [Suspect]
     Active Substance: LENVATINIB
     Dosage: 10 MILLIGRAM, QD
     Route: 048
     Dates: start: 20220317, end: 20220323
  7. LENVIMA [Suspect]
     Active Substance: LENVATINIB
     Dosage: 14 MILLIGRAM, 5-DAYS ON AND 2-DAYS OFF
     Route: 048
     Dates: start: 20220323, end: 20220623
  8. LENVIMA [Suspect]
     Active Substance: LENVATINIB
     Dosage: 14 MILLIGRAM, 5-DAYS ON AND 2-DAYS OFF
     Route: 048
     Dates: start: 20220714

REACTIONS (7)
  - Platelet count decreased [Recovered/Resolved]
  - Immune-mediated hypothyroidism [Recovered/Resolved]
  - Infection [Unknown]
  - Rheumatic disorder [Unknown]
  - Hypertension [Recovering/Resolving]
  - Pain in extremity [Not Recovered/Not Resolved]
  - Arthritis [Unknown]

NARRATIVE: CASE EVENT DATE: 20220101
